FAERS Safety Report 9353699 (Version 1)
Quarter: 2013Q2

REPORT INFORMATION
  Report Type: Spontaneous
  Country: ES (occurrence: None)
  Receive Date: 20130612
  Receipt Date: 20130612
  Transmission Date: 20140414
  Serious: Yes (Death, Hospitalization)
  Sender: FDA-Public Use
  Company Number: AE-SPE-2013-015

PATIENT
  Age: 89 Year
  Sex: Male

DRUGS (6)
  1. SPECTRACEF [Suspect]
     Indication: RESPIRATORY TRACT INFECTION
     Route: 048
     Dates: start: 201305, end: 20130506
  2. HIDROSALURETIL TABLETS [Concomitant]
  3. LAMICTAL 100 MG CHEWABLE TABLETS [Concomitant]
  4. LAMICTAL 50 MG CHEWABLE TABLETS [Concomitant]
  5. DIAMICRON 30 MG MODIFIED RELEASE TABLETS [Concomitant]
  6. LEVODOPA + CARBIDOPA [Concomitant]

REACTIONS (3)
  - Respiratory tract infection [None]
  - Asthenia [None]
  - Pyrexia [None]
